FAERS Safety Report 8775934 (Version 2)
Quarter: 2012Q4

REPORT INFORMATION
  Report Type: 
  Country: FR (occurrence: FR)
  Receive Date: 20120910
  Receipt Date: 20121016
  Transmission Date: 20130627
  Serious: Yes (Other)
  Sender: FDA-Public Use
  Company Number: FR-ROCHE-1116964

PATIENT
  Age: 74 Year
  Sex: Female
  Weight: 85 kg

DRUGS (8)
  1. ZELBORAF [Suspect]
     Indication: METASTATIC MALIGNANT MELANOMA
     Route: 048
     Dates: end: 20120907
  2. COLOPEG [Concomitant]
     Indication: CONSTIPATION
  3. EFFERALGAN [Concomitant]
     Indication: PAIN
  4. INEXIUM [Concomitant]
  5. TAHOR [Concomitant]
     Indication: DYSLIPIDAEMIA
  6. DEDROGYL [Concomitant]
     Indication: OSTEOPOROSIS
  7. METOCLOPRAMIDE [Concomitant]
     Indication: PARKINSON^S DISEASE
  8. NORMACOL (FRANCE) [Concomitant]
     Indication: CONSTIPATION

REACTIONS (3)
  - Blepharal papilloma [Recovered/Resolved]
  - Keratoacanthoma [Recovered/Resolved with Sequelae]
  - Squamous cell carcinoma [Recovered/Resolved with Sequelae]
